FAERS Safety Report 17819058 (Version 1)
Quarter: 2020Q2

REPORT INFORMATION
  Report Type: Report from Study
  Country: US (occurrence: US)
  Receive Date: 20200523
  Receipt Date: 20200523
  Transmission Date: 20200714
  Serious: Yes (Hospitalization)
  Sender: FDA-Public Use
  Company Number: US-ROCHE-2600573

PATIENT
  Age: 80 Year
  Sex: Female
  Weight: 48.5 kg

DRUGS (1)
  1. ATEZOLIZUMAB. [Suspect]
     Active Substance: ATEZOLIZUMAB
     Indication: BLADDER TRANSITIONAL CELL CARCINOMA
     Dosage: ON 03/JUL/2019, SHE RECEIVED THE LAST DOSE OF THE INTRAVENOUS ATEZOLIZUMAB 1200 MG
     Route: 042
     Dates: start: 20190501

REACTIONS (1)
  - Gastritis [Recovered/Resolved]

NARRATIVE: CASE EVENT DATE: 20190724
